FAERS Safety Report 10184724 (Version 1)
Quarter: 2014Q2

REPORT INFORMATION
  Report Type: Spontaneous
  Country: US (occurrence: None)
  Receive Date: 20140520
  Receipt Date: 20140520
  Transmission Date: 20141212
  Serious: Yes (Hospitalization)
  Sender: FDA-Public Use
  Company Number: None

PATIENT
  Age: 61 Year
  Sex: Female

DRUGS (17)
  1. ANTITHYMOCYTE GLOBULIN [Suspect]
     Indication: ANAEMIA
     Route: 042
     Dates: start: 20120918, end: 20120919
  2. ANTITHYMOCYTE GLOBULIN [Suspect]
     Indication: APLASTIC ANAEMIA
     Route: 042
     Dates: start: 20120918, end: 20120919
  3. ACETAMINOPHEN [Concomitant]
  4. CYCLOSPORINE [Concomitant]
  5. FLUCONAZOLE [Concomitant]
  6. HYDROCORTISONE [Concomitant]
  7. LANSOPRAZOLE [Concomitant]
  8. LORAZEPAM [Concomitant]
  9. METHYLPREDNISOLONE [Concomitant]
  10. METOPROLOL [Concomitant]
  11. PROCHLORPERAZINE [Concomitant]
  12. RANITIDINE [Concomitant]
  13. SENNA [Concomitant]
  14. DOCUSATE [Concomitant]
  15. SIMVASTATIN [Concomitant]
  16. TEMAZEPAM [Concomitant]
  17. VALACYCLOVIR [Concomitant]

REACTIONS (1)
  - Urticaria [None]
